FAERS Safety Report 18567671 (Version 2)
Quarter: 2021Q1

REPORT INFORMATION
  Report Type: Report from Study
  Country: US (occurrence: US)
  Receive Date: 20201202
  Receipt Date: 20210106
  Transmission Date: 20210419
  Serious: No
  Sender: FDA-Public Use
  Company Number: US-BEIGENE USA INC-BGN-2020-002567

PATIENT

DRUGS (1)
  1. BRUKINSA [Suspect]
     Active Substance: ZANUBRUTINIB
     Indication: WALDENSTROM^S MACROGLOBULINAEMIA
     Dosage: 160 MILLIGRAM, BID
     Route: 048
     Dates: start: 20201124

REACTIONS (3)
  - Off label use [Unknown]
  - Night sweats [Unknown]
  - Cough [Unknown]

NARRATIVE: CASE EVENT DATE: 20201124
